FAERS Safety Report 20360390 (Version 1)
Quarter: 2022Q1

REPORT INFORMATION
  Report Type: Spontaneous
  Country: FR (occurrence: FR)
  Receive Date: 20220121
  Receipt Date: 20220121
  Transmission Date: 20220423
  Serious: Yes (Other)
  Sender: FDA-Public Use
  Company Number: None

PATIENT
  Sex: Female

DRUGS (5)
  1. ERLOTINIB [Suspect]
     Active Substance: ERLOTINIB
     Indication: Non-small cell lung cancer
     Dosage: UNK
     Route: 065
  2. TABRECTA [Suspect]
     Active Substance: CAPMATINIB
     Indication: Non-small cell lung cancer
     Dosage: 600 MG, QD
     Route: 065
     Dates: start: 202112
  3. TABRECTA [Suspect]
     Active Substance: CAPMATINIB
     Dosage: 800 MG, QD
     Route: 065
     Dates: start: 20210907
  4. GEMCITABINE [Suspect]
     Active Substance: GEMCITABINE
     Indication: Non-small cell lung cancer
     Dosage: UNK
     Route: 065
  5. VINORELBINE [Suspect]
     Active Substance: VINORELBINE TARTRATE
     Indication: Non-small cell lung cancer
     Dosage: UNK
     Route: 065

REACTIONS (8)
  - Non-small cell lung cancer [Unknown]
  - Malignant neoplasm progression [Unknown]
  - Creatinine renal clearance decreased [Unknown]
  - Blood potassium increased [Recovered/Resolved]
  - Oedema peripheral [Unknown]
  - Blood creatinine increased [Unknown]
  - Gamma-glutamyltransferase increased [Recovered/Resolved]
  - Alanine aminotransferase increased [Recovered/Resolved]

NARRATIVE: CASE EVENT DATE: 20211004
